FAERS Safety Report 18447660 (Version 3)
Quarter: 2021Q1

REPORT INFORMATION
  Report Type: Spontaneous
  Country: JP (occurrence: JP)
  Receive Date: 20201030
  Receipt Date: 20210119
  Transmission Date: 20210419
  Serious: Yes (Death, Life-Threatening, Disabling, Other)
  Sender: FDA-Public Use
  Company Number: JP-OTSUKA-2020_026823

PATIENT
  Age: 84 Year
  Sex: Female

DRUGS (4)
  1. DOBUPUM [Suspect]
     Active Substance: DOBUTAMINE HYDROCHLORIDE
     Indication: PRODUCT USED FOR UNKNOWN INDICATION
     Dosage: 1 GAMMA ? 3 GAMMA/DAY
     Route: 042
     Dates: start: 20191004, end: 20191010
  2. SAMSCA [Suspect]
     Active Substance: TOLVAPTAN
     Indication: CARDIAC FAILURE
     Dosage: 7.5 MG, QD
     Route: 048
     Dates: start: 20191006, end: 20191016
  3. NORADRENALINE [Suspect]
     Active Substance: NOREPINEPHRINE
     Indication: PRODUCT USED FOR UNKNOWN INDICATION
     Dosage: 0.4 MG/H TO 0.8 MG/H
     Route: 042
     Dates: start: 20191004, end: 20191009
  4. AZOSEMIDE [Concomitant]
     Active Substance: AZOSEMIDE
     Indication: PRODUCT USED FOR UNKNOWN INDICATION
     Dosage: 30 MG, QD
     Route: 048
     Dates: start: 20191006, end: 20191022

REACTIONS (4)
  - Cerebral infarction [Not Recovered/Not Resolved]
  - Ventricular fibrillation [Recovered/Resolved with Sequelae]
  - Sepsis [Fatal]
  - Stress cardiomyopathy [Fatal]

NARRATIVE: CASE EVENT DATE: 20191007
